FAERS Safety Report 23600086 (Version 4)
Quarter: 2024Q2

REPORT INFORMATION
  Report Type: Other
  Country: US (occurrence: None)
  Receive Date: 20240306
  Receipt Date: 20240410
  Transmission Date: 20240716
  Serious: Yes (Hospitalization)
  Sender: FDA-Public Use
  Company Number: US-ROCHE-3316441

PATIENT
  Age: 78 Year
  Sex: Male
  Weight: 65.83 kg

DRUGS (34)
  1. ACTEMRA [Suspect]
     Active Substance: TOCILIZUMAB
     Indication: Rheumatoid arthritis
     Route: 058
  2. ACTEMRA [Suspect]
     Active Substance: TOCILIZUMAB
  3. ASPIRIN [Concomitant]
     Active Substance: ASPIRIN
  4. AMOXICILLIN [Concomitant]
     Active Substance: AMOXICILLIN
  5. OMEPRAZOLE [Concomitant]
     Active Substance: OMEPRAZOLE
  6. LISINOPRIL [Concomitant]
     Active Substance: LISINOPRIL
  7. MELOXICAM [Concomitant]
     Active Substance: MELOXICAM
  8. CETIRIZINE HYDROCHLORIDE [Concomitant]
     Active Substance: CETIRIZINE HYDROCHLORIDE
  9. PREDNISOLONE [Concomitant]
     Active Substance: PREDNISOLONE
  10. FENTANYL [Concomitant]
     Active Substance: FENTANYL\FENTANYL CITRATE
  11. DURAGESIC [Concomitant]
     Active Substance: FENTANYL
  12. ROXICODONE [Concomitant]
     Active Substance: OXYCODONE HYDROCHLORIDE
  13. UNSPECIFIED INGREDIENT [Concomitant]
     Active Substance: UNSPECIFIED INGREDIENT
  14. NEURONTIN [Concomitant]
     Active Substance: GABAPENTIN
  15. FLEXERIL [Concomitant]
     Active Substance: CYCLOBENZAPRINE HYDROCHLORIDE
  16. MELOXICAM [Concomitant]
     Active Substance: MELOXICAM
  17. LISINOPRIL [Concomitant]
     Active Substance: LISINOPRIL
  18. PLAQUENIL [Concomitant]
     Active Substance: HYDROXYCHLOROQUINE SULFATE
  19. NIZORAL [Concomitant]
     Active Substance: KETOCONAZOLE
  20. COLACE [Concomitant]
     Active Substance: DOCUSATE SODIUM
  21. REMERON [Concomitant]
     Active Substance: MIRTAZAPINE
  22. PROSCAR [Concomitant]
     Active Substance: FINASTERIDE
  23. PRILOSEC [Concomitant]
     Active Substance: OMEPRAZOLE MAGNESIUM
  24. TAMSULOSIN [Concomitant]
     Active Substance: TAMSULOSIN
  25. DELTASONE [Concomitant]
     Active Substance: PREDNISONE
  26. CALCIUM CARBONATE [Concomitant]
     Active Substance: CALCIUM CARBONATE
  27. CETIRIZINE HYDROCHLORIDE [Concomitant]
     Active Substance: CETIRIZINE HYDROCHLORIDE
  28. POTASSIUM GLUCONATE [Concomitant]
     Active Substance: POTASSIUM GLUCONATE
  29. SENNA S [Concomitant]
     Active Substance: DOCUSATE SODIUM\SENNA LEAF
  30. FLONASE [Concomitant]
     Active Substance: FLUTICASONE PROPIONATE
  31. MAGNESIUM OXIDE [Concomitant]
     Active Substance: MAGNESIUM OXIDE
  32. FLORASTOR [SACCHAROMYCES BOULARDII] [Concomitant]
  33. NARCAN [Concomitant]
     Active Substance: NALOXONE HYDROCHLORIDE
  34. TYLENOL [Concomitant]
     Active Substance: ACETAMINOPHEN

REACTIONS (11)
  - Sepsis [Recovered/Resolved with Sequelae]
  - Fall [Unknown]
  - Musculoskeletal stiffness [Not Recovered/Not Resolved]
  - Pain [Not Recovered/Not Resolved]
  - Enthesopathy [Not Recovered/Not Resolved]
  - Immunosuppression [Unknown]
  - Wound [Recovered/Resolved]
  - Muscle spasms [Unknown]
  - Dyspepsia [Unknown]
  - Peroneal nerve palsy [Unknown]
  - Back injury [Recovered/Resolved]

NARRATIVE: CASE EVENT DATE: 20230110
